FAERS Safety Report 7442535-3 (Version None)
Quarter: 2011Q2

REPORT INFORMATION
  Report Type: 
  Country: None (occurrence: None)
  Receive Date: 20110426
  Receipt Date: 20110426
  Transmission Date: 20111010
  Serious: No
  Sender: FDA-Public Use
  Company Number: None

PATIENT
  Age: 51 Year
  Sex: Female
  Weight: 72.5755 kg

DRUGS (10)
  1. GLYCOPYRROLATE [Concomitant]
  2. MIDAZOLAM [Concomitant]
  3. PROPOFOL [Concomitant]
  4. OFIRMEV [Suspect]
     Indication: PERIOPERATIVE ANALGESIA
     Dosage: 1000 MG XL IV BOLUS
     Route: 040
     Dates: start: 20110407, end: 20110407
  5. FENTANYL [Concomitant]
  6. NEOSTIGMINE [Concomitant]
  7. ONDANSETRON [Concomitant]
  8. REGLAN [Concomitant]
  9. LIDOCAINE [Concomitant]
  10. ROCURONIUM [Concomitant]

REACTIONS (1)
  - LARYNGOSPASM [None]
